FAERS Safety Report 9994248 (Version 2)
Quarter: 2014Q1

REPORT INFORMATION
  Report Type: Spontaneous
  Country: CA (occurrence: CA)
  Receive Date: 20140310
  Receipt Date: 20140310
  Transmission Date: 20141002
  Serious: Yes (Hospitalization, Other)
  Sender: FDA-Public Use
  Company Number: CA-BAXTER-2014BAX008652

PATIENT
  Age: 49 Year
  Sex: Male

DRUGS (1)
  1. DIANEAL PD4 SOLUTION WITH 2.5% DEXTROSE AND 2.5 MEQ/L CALCIUM [Suspect]
     Indication: PERITONEAL DIALYSIS
     Route: 033

REACTIONS (5)
  - Road traffic accident [Unknown]
  - Skin ulcer [Recovering/Resolving]
  - Sepsis [Recovering/Resolving]
  - Bladder disorder [Recovering/Resolving]
  - Blood urine present [Recovering/Resolving]
